FAERS Safety Report 23983701 (Version 1)
Quarter: 2024Q2

REPORT INFORMATION
  Report Type: Report from Study
  Country: US (occurrence: US)
  Receive Date: 20240618
  Receipt Date: 20240618
  Transmission Date: 20240716
  Serious: Yes (Hospitalization, Other)
  Sender: FDA-Public Use
  Company Number: US-ABBVIE-5796849

PATIENT
  Age: 28 Year
  Sex: Male
  Weight: 74 kg

DRUGS (4)
  1. RINVOQ [Suspect]
     Active Substance: UPADACITINIB
     Indication: Crohn^s disease
     Route: 048
     Dates: start: 20230903
  2. IRON [Concomitant]
     Active Substance: IRON
     Indication: Mineral supplementation
  3. VITAMIN D [Concomitant]
     Active Substance: VITAMIN D NOS
     Indication: Product used for unknown indication
  4. FISH OIL [Concomitant]
     Active Substance: FISH OIL
     Indication: Product used for unknown indication

REACTIONS (12)
  - Intra-abdominal haemorrhage [Recovered/Resolved]
  - Faeces discoloured [Recovered/Resolved]
  - Crohn^s disease [Not Recovered/Not Resolved]
  - Haemoglobin decreased [Recovered/Resolved]
  - Pain [Recovering/Resolving]
  - Haemoglobin decreased [Recovered/Resolved]
  - Haemorrhage [Recovered/Resolved]
  - Blood iron decreased [Recovered/Resolved]
  - Cold sweat [Recovered/Resolved]
  - Blood iron decreased [Recovered/Resolved]
  - Nausea [Recovered/Resolved]
  - Dyspnoea [Recovered/Resolved]

NARRATIVE: CASE EVENT DATE: 20231101
